FAERS Safety Report 24428475 (Version 3)
Quarter: 2024Q4

REPORT INFORMATION
  Report Type: Report from Study
  Country: US (occurrence: US)
  Receive Date: 20241011
  Receipt Date: 20241025
  Transmission Date: 20250114
  Serious: Yes (Life-Threatening)
  Sender: CALLIDITAS THERAPEUTICS AB
  Company Number: US-Calliditas-2024CAL01513

PATIENT
  Age: 69 Year
  Sex: Male
  Weight: 132.5 kg

DRUGS (3)
  1. TARPEYO [Suspect]
     Active Substance: BUDESONIDE
     Indication: IgA nephropathy
     Route: 048
     Dates: start: 20240716
  2. LOSARTAN [Concomitant]
     Active Substance: LOSARTAN
  3. LASIX [Concomitant]
     Active Substance: FUROSEMIDE

REACTIONS (4)
  - Peripheral swelling [Recovering/Resolving]
  - Blood glucose increased [Not Recovered/Not Resolved]
  - Abdominal distension [Recovered/Resolved]
  - Blood potassium decreased [Not Recovered/Not Resolved]

NARRATIVE: CASE EVENT DATE: 20240720
